FAERS Safety Report 5528353-1 (Version None)
Quarter: 2007Q4

REPORT INFORMATION
  Report Type: 
  Country: None (occurrence: None)
  Receive Date: 20071121
  Receipt Date: 20071112
  Transmission Date: 20080405
  Serious: Yes (Hospitalization)
  Sender: FDA-Public Use
  Company Number: 2006-01468

PATIENT
  Age: 63 Year
  Sex: 0

DRUGS (10)
  1. VELCADE [Suspect]
     Indication: MULTIPLE MYELOMA
     Dosage: 8.40 MG, INTRAVENOUS
     Route: 042
  2. ADRIAMYCIN RDF [Suspect]
     Indication: MULTIPLE MYELOMA
     Dosage: 57.60 MG
     Dates: start: 20060610, end: 20060613
  3. DEXAMETHASONE [Suspect]
     Indication: MULTIPLE MYELOMA
     Dosage: 480.00 MG
     Dates: start: 20060610, end: 20060629
  4. METAMIZOLE SODIUM (METAMIZOLE SODIUM) DROP [Concomitant]
  5. TRAMADOL HYDROHLORIDE [Concomitant]
  6. PANTOZOL (PANTOPRAZOLE SODIUM) [Concomitant]
  7. FUROSEMIDE [Concomitant]
  8. NOVALGIN (METAMIZOLE SODIUM) [Concomitant]
  9. ALLOPURINOL [Concomitant]
  10. PASPERTIN (METOCLOPRAMIDE HYDROCHLORIDE) [Concomitant]

REACTIONS (1)
  - HEPATITIS [None]
